FAERS Safety Report 6330663-5 (Version None)
Quarter: 2009Q3

REPORT INFORMATION
  Report Type: 
  Country: None (occurrence: None)
  Receive Date: 20090827
  Receipt Date: 20090825
  Transmission Date: 20100115
  Serious: Yes (Hospitalization)
  Sender: FDA-Public Use
  Company Number: AT-AVENTIS-200915068EU

PATIENT
  Age: 77 Year
  Sex: Male
  Weight: 77 kg

DRUGS (8)
  1. LASIX [Suspect]
     Dosage: DOSE: UNK
     Route: 048
  2. ALDACTONE [Suspect]
     Route: 048
  3. HEPA-MERZ [Concomitant]
     Dosage: DOSE: UNK
     Route: 048
  4. INDERAL                            /00030001/ [Concomitant]
     Dosage: DOSE: UNK
     Route: 048
  5. MAGNONORM-GENERICON [Concomitant]
     Dosage: DOSE: UNK
     Route: 048
  6. NITROLINGUAL [Concomitant]
     Dosage: DOSE: UNK
     Route: 048
  7. NOVALGIN                           /00039501/ [Concomitant]
     Route: 048
  8. ASPIRIN [Concomitant]
     Dosage: DOSE: UNK
     Route: 048

REACTIONS (2)
  - HYPERKALAEMIA [None]
  - HYPONATRAEMIA [None]
